FAERS Safety Report 10101965 (Version 1)
Quarter: 2014Q2

REPORT INFORMATION
  Report Type: Spontaneous
  Country: US (occurrence: US)
  Receive Date: 20140424
  Receipt Date: 20140424
  Transmission Date: 20141212
  Serious: Yes (Other)
  Sender: FDA-Public Use
  Company Number: US-BRISTOL-MYERS SQUIBB COMPANY-20641015

PATIENT
  Age: 69 Year
  Sex: Female

DRUGS (8)
  1. ABILIFY TABS [Suspect]
     Dosage: 1 IN THE MORNING AND 2 AT NIGHT
  2. VITAMIN D2 [Concomitant]
  3. BABY ASPIRIN [Concomitant]
  4. DONEPEZIL [Concomitant]
  5. DIAZEPAM [Concomitant]
  6. TYLENOL + CODEINE [Concomitant]
  7. DIVALPROEX [Concomitant]
  8. CYCLOBENZAPRINE [Concomitant]

REACTIONS (3)
  - Dementia [Unknown]
  - Pain [Unknown]
  - Malaise [Unknown]
